FAERS Safety Report 5784598-7 (Version None)
Quarter: 2008Q2

REPORT INFORMATION
  Report Type: 
  Country: None (occurrence: None)
  Receive Date: 20080605
  Receipt Date: 20080409
  Transmission Date: 20081010
  Serious: No
  Sender: FDA-Public Use
  Company Number: A0721859A

PATIENT

DRUGS (5)
  1. ALLI [Suspect]
  2. WELLBUTRIN [Concomitant]
  3. NORTRIPTYLINE HCL [Concomitant]
  4. AMITRIPTYLINE HCL [Concomitant]
  5. VERAPAMIL [Concomitant]

REACTIONS (1)
  - MIGRAINE [None]
